FAERS Safety Report 20948158 (Version 3)
Quarter: 2022Q4

REPORT INFORMATION
  Report Type: Spontaneous
  Country: US (occurrence: US)
  Receive Date: 20220611
  Receipt Date: 20221006
  Transmission Date: 20230112
  Serious: No
  Sender: FDA-Public Use
  Company Number: US-GSKCCFUS-Case-01399010_AE-80605

PATIENT
  Sex: Female

DRUGS (1)
  1. BENLYSTA [Suspect]
     Active Substance: BELIMUMAB
     Indication: Systemic lupus erythematosus
     Dosage: UNK
     Dates: start: 20220605, end: 2022

REACTIONS (10)
  - Rhinorrhoea [Unknown]
  - Hypersensitivity [Unknown]
  - Osteoarthritis [Unknown]
  - Myositis [Unknown]
  - Calcinosis [Unknown]
  - Gait disturbance [Unknown]
  - Condition aggravated [Unknown]
  - Exposure via skin contact [Unknown]
  - Accidental exposure to product [Unknown]
  - Underdose [Unknown]

NARRATIVE: CASE EVENT DATE: 20220101
